FAERS Safety Report 5614070-6 (Version None)
Quarter: 2008Q1

REPORT INFORMATION
  Report Type: 
  Country: None (occurrence: None)
  Receive Date: 20080205
  Receipt Date: 20080123
  Transmission Date: 20080703
  Serious: Yes (Other)
  Sender: FDA-Public Use
  Company Number: CL-AMGEN-US251308

PATIENT
  Sex: Female
  Weight: 38.4 kg

DRUGS (4)
  1. PANITUMUMAB [Suspect]
     Indication: COLORECTAL CANCER
     Route: 042
     Dates: start: 20070529, end: 20070830
  2. OXALIPLATIN [Concomitant]
     Dates: end: 20070830
  3. LEUCOVORIN CALCIUM [Concomitant]
     Dates: end: 20070831
  4. FLUOROURACIL [Concomitant]
     Dates: end: 20070831

REACTIONS (1)
  - CHYLOTHORAX [None]
